FAERS Safety Report 14860226 (Version 2)
Quarter: 2018Q2

REPORT INFORMATION
  Report Type: Report from Study
  Country: US (occurrence: US)
  Receive Date: 20180508
  Receipt Date: 20180529
  Transmission Date: 20180711
  Serious: Yes (Other)
  Sender: FDA-Public Use
  Company Number: US-JNJFOC-20180504656

PATIENT
  Age: 72 Year
  Sex: Male

DRUGS (15)
  1. FLOMAX [Concomitant]
     Active Substance: TAMSULOSIN HYDROCHLORIDE
  2. LEVOFLOXACIN. [Concomitant]
     Active Substance: LEVOFLOXACIN
  3. DEXAMETHASONE. [Concomitant]
     Active Substance: DEXAMETHASONE
  4. MULTIVITAMINS [Concomitant]
     Active Substance: VITAMINS
  5. IMBRUVICA [Concomitant]
     Active Substance: IBRUTINIB
     Indication: CHRONIC LYMPHOCYTIC LEUKAEMIA
     Dosage: 420 MG, QD
     Route: 048
     Dates: start: 20161205, end: 20180329
  6. TYLENOL EXTRA STRENGTH [Concomitant]
     Active Substance: ACETAMINOPHEN
  7. IMBRUVICA [Suspect]
     Active Substance: IBRUTINIB
     Indication: CHRONIC LYMPHOCYTIC LEUKAEMIA
     Dosage: 280 MG, QD
     Route: 048
     Dates: start: 20180330, end: 2018
  8. ATIVAN [Concomitant]
     Active Substance: LORAZEPAM
  9. ZANTAC [Concomitant]
     Active Substance: RANITIDINE HYDROCHLORIDE
  10. CHOLECALCIFEROL [Concomitant]
     Active Substance: CHOLECALCIFEROL
  11. BIOTIN [Concomitant]
     Active Substance: BIOTIN
  12. OMEPRAZOLE. [Concomitant]
     Active Substance: OMEPRAZOLE
  13. IMBRUVICA [Suspect]
     Active Substance: IBRUTINIB
     Indication: CHRONIC LYMPHOCYTIC LEUKAEMIA
     Dosage: 420 MG, QD
     Route: 048
     Dates: start: 20180330
  14. ACYCLOVIR. [Concomitant]
     Active Substance: ACYCLOVIR
  15. MELATONIN [Concomitant]
     Active Substance: MELATONIN

REACTIONS (3)
  - Haematuria [Unknown]
  - Incorrect dosage administered [Unknown]
  - Off label use [Unknown]

NARRATIVE: CASE EVENT DATE: 20180330
